FAERS Safety Report 6745491-6 (Version None)
Quarter: 2010Q2

REPORT INFORMATION
  Report Type: 
  Country: None (occurrence: None)
  Receive Date: 20100528
  Receipt Date: 20100517
  Transmission Date: 20101027
  Serious: Yes (Hospitalization)
  Sender: FDA-Public Use
  Company Number: JP-JNJFOC-20100305826

PATIENT
  Sex: Female
  Weight: 52 kg

DRUGS (30)
  1. DOXIL [Suspect]
     Indication: OVARIAN CANCER RECURRENT
     Dosage: CYCLE 4
     Route: 042
  2. DOXIL [Suspect]
     Dosage: CYCLE 1
     Route: 042
  3. DOXIL [Suspect]
     Dosage: CYCLE 2
     Route: 042
  4. DOXIL [Suspect]
     Dosage: CYCLE 3
     Route: 042
  5. DAIO-KANZO-TO [Concomitant]
     Indication: CONSTIPATION
     Route: 048
  6. AZUNOL [Concomitant]
     Indication: PROPHYLAXIS
     Route: 048
  7. SUNRYTHM [Concomitant]
     Indication: MITRAL VALVE INCOMPETENCE
     Route: 048
  8. MYSLEE [Concomitant]
     Indication: INSOMNIA
     Route: 048
  9. MEIACT [Concomitant]
     Indication: DRUG USE FOR UNKNOWN INDICATION
     Route: 048
  10. DECADRON [Concomitant]
     Indication: PROPHYLAXIS
     Route: 048
  11. DECADRON [Concomitant]
     Route: 048
  12. DECADRON [Concomitant]
     Route: 048
  13. DECADRON [Concomitant]
     Route: 048
  14. DECADRON [Concomitant]
     Route: 048
  15. DECADRON [Concomitant]
     Route: 048
  16. DECADRON [Concomitant]
     Route: 048
  17. DECADRON [Concomitant]
     Route: 048
  18. DECADRON [Concomitant]
     Route: 048
  19. DECADRON [Concomitant]
     Route: 048
  20. BANAN [Concomitant]
     Indication: DRUG USE FOR UNKNOWN INDICATION
     Route: 048
  21. RAMELTEON [Concomitant]
     Indication: PROPHYLAXIS
     Route: 042
  22. RAMELTEON [Concomitant]
     Route: 042
  23. RAMELTEON [Concomitant]
     Route: 042
  24. RAMELTEON [Concomitant]
     Route: 042
  25. THIAMINE MONOPHOSPHATE DISULFIDE [Concomitant]
     Indication: PROPHYLAXIS
     Route: 042
  26. THIAMINE MONOPHOSPHATE DISULFIDE [Concomitant]
     Route: 042
  27. THIAMINE MONOPHOSPHATE DISULFIDE [Concomitant]
     Route: 042
  28. THIAMINE MONOPHOSPHATE DISULFIDE [Concomitant]
     Route: 042
  29. GRAN [Concomitant]
     Indication: WHITE BLOOD CELL COUNT DECREASED
     Route: 058
  30. GEMCITABINE HYDROCHLORIDE [Concomitant]
     Indication: DRUG USE FOR UNKNOWN INDICATION
     Route: 065

REACTIONS (1)
  - INTERSTITIAL LUNG DISEASE [None]
